FAERS Safety Report 8124325-1 (Version None)
Quarter: 2012Q1

REPORT INFORMATION
  Report Type: 
  Country: None (occurrence: None)
  Receive Date: 20120209
  Receipt Date: 20120131
  Transmission Date: 20120608
  Serious: Yes (Disabling)
  Sender: FDA-Public Use
  Company Number: EG-JNJFOC-20120201079

PATIENT
  Age: 37 Year
  Sex: Female
  Weight: 60 kg

DRUGS (5)
  1. CORTICOSTEROIDS [Concomitant]
     Indication: ANTIINFLAMMATORY THERAPY
     Route: 065
  2. OMEPRAZOLE [Concomitant]
     Indication: GASTRIC ULCER
     Route: 065
  3. REMICADE [Suspect]
     Indication: RHEUMATOID ARTHRITIS
     Route: 042
     Dates: start: 20120131
  4. ALL OTHER THERAPEUTICS [Concomitant]
     Indication: ANTIINFLAMMATORY THERAPY
     Route: 065
  5. IMURAN [Concomitant]
     Indication: IMMUNE SYSTEM DISORDER
     Route: 065

REACTIONS (4)
  - VOMITING [None]
  - ABDOMINAL PAIN [None]
  - PYREXIA [None]
  - OEDEMA [None]
